FAERS Safety Report 9521597 (Version 1)
Quarter: 2013Q3

REPORT INFORMATION
  Report Type: Spontaneous
  Country: US (occurrence: None)
  Receive Date: 20130911
  Receipt Date: 20130911
  Transmission Date: 20140515
  Serious: No
  Sender: FDA-Public Use
  Company Number: AEUSA201300160

PATIENT
  Age: 70 Year
  Sex: Female

DRUGS (4)
  1. GAMMAKED [Suspect]
     Indication: GUILLAIN-BARRE SYNDROME
     Route: 042
     Dates: start: 20130418, end: 20130418
  2. GABAPENTIN [Concomitant]
  3. AMBIEN [Concomitant]
  4. IGIVNEX [Concomitant]

REACTIONS (5)
  - Musculoskeletal stiffness [None]
  - Angioedema [None]
  - Myalgia [None]
  - Malaise [None]
  - Pain [None]
